FAERS Safety Report 10956740 (Version 1)
Quarter: 2015Q1

REPORT INFORMATION
  Report Type: Spontaneous
  Country: US (occurrence: US)
  Receive Date: 20150326
  Receipt Date: 20150326
  Transmission Date: 20150721
  Serious: No
  Sender: FDA-Public Use
  Company Number: US-MYLANLABS-2014S1009551

PATIENT
  Age: 70 Year
  Sex: Female
  Weight: 79.38 kg

DRUGS (5)
  1. OMEPRAZOLE. [Concomitant]
     Active Substance: OMEPRAZOLE
     Indication: GASTROOESOPHAGEAL REFLUX DISEASE
     Dosage: UNK UNK,QD
     Route: 048
     Dates: start: 2004
  2. EMSAM [Suspect]
     Active Substance: SELEGILINE
     Dosage: 12 MG,QD
     Route: 062
     Dates: start: 2009
  3. EMSAM [Suspect]
     Active Substance: SELEGILINE
     Indication: DEPRESSION
  4. XANAX [Concomitant]
     Active Substance: ALPRAZOLAM
     Indication: ANXIETY
     Dosage: .25 MG,QID
     Route: 048
     Dates: start: 2009
  5. EMSAM [Suspect]
     Active Substance: SELEGILINE
     Dosage: 12 MG,QD
     Route: 062
     Dates: start: 2009

REACTIONS (12)
  - Depression [Not Recovered/Not Resolved]
  - Chills [Not Recovered/Not Resolved]
  - Fatigue [Not Recovered/Not Resolved]
  - Somnolence [Not Recovered/Not Resolved]
  - Drug ineffective [Not Recovered/Not Resolved]
  - Decreased interest [Not Recovered/Not Resolved]
  - Nausea [Not Recovered/Not Resolved]
  - Irritability [Not Recovered/Not Resolved]
  - Mood altered [Not Recovered/Not Resolved]
  - Drug withdrawal syndrome [Not Recovered/Not Resolved]
  - Lethargy [Not Recovered/Not Resolved]
  - Headache [Not Recovered/Not Resolved]

NARRATIVE: CASE EVENT DATE: 201403
